FAERS Safety Report 8296713-4 (Version None)
Quarter: 2012Q2

REPORT INFORMATION
  Report Type: 
  Country: None (occurrence: None)
  Receive Date: 20120418
  Receipt Date: 20120216
  Transmission Date: 20120825
  Serious: Yes (Other)
  Sender: FDA-Public Use
  Company Number: PT-BAXTER-2012BH003417

PATIENT
  Sex: Male

DRUGS (1)
  1. PHYSIONEAL_1.36% PHYSIONEAL 35_SOLUTION FOR PERITONEAL DIALYSIS_BAG, P [Suspect]
     Route: 033
     Dates: start: 20091028

REACTIONS (1)
  - PERITONITIS BACTERIAL [None]
